FAERS Safety Report 7827641-3 (Version None)
Quarter: 2011Q4

REPORT INFORMATION
  Report Type: 
  Country: None (occurrence: None)
  Receive Date: 20111020
  Receipt Date: 20111013
  Transmission Date: 20120403
  Serious: Yes (Other)
  Sender: FDA-Public Use
  Company Number: PHHY2011CA89955

PATIENT

DRUGS (1)
  1. ALISKIREN [Suspect]

REACTIONS (2)
  - CHEST DISCOMFORT [None]
  - ANXIETY [None]
